FAERS Safety Report 7066475-7 (Version None)
Quarter: 2010Q4

REPORT INFORMATION
  Report Type: 
  Country: None (occurrence: None)
  Receive Date: 20101027
  Receipt Date: 20100422
  Transmission Date: 20110411
  Serious: No
  Sender: FDA-Public Use
  Company Number: US-WYE-H14894210

PATIENT
  Sex: Female
  Weight: 54.48 kg

DRUGS (6)
  1. PREMPRO [Suspect]
     Dosage: UNKNOWN
     Route: 065
     Dates: start: 20050101, end: 20090101
  2. PREMPRO [Suspect]
     Route: 065
     Dates: start: 20090101
  3. SUMATRIPTAN SUCCINATE [Concomitant]
  4. PSEUDOEPHEDRINE HYDROCHLORIDE [Concomitant]
  5. ZYRTEC [Concomitant]
  6. MUCINEX [Concomitant]

REACTIONS (2)
  - DYSGEUSIA [None]
  - SKIN WRINKLING [None]
